FAERS Safety Report 24059557 (Version 1)
Quarter: 2024Q3

REPORT INFORMATION
  Report Type: Spontaneous
  Country: GB (occurrence: GB)
  Receive Date: 20240708
  Receipt Date: 20240708
  Transmission Date: 20241016
  Serious: Yes (Other)
  Sender: MENARINI
  Company Number: None

PATIENT
  Age: 75 Year
  Sex: Male
  Weight: 99 kg

DRUGS (13)
  1. RANOLAZINE [Suspect]
     Active Substance: RANOLAZINE
     Dosage: 750 MG, QD
     Route: 048
  2. MACROGOL COMP [Concomitant]
     Route: 050
     Dates: start: 20240328, end: 20240417
  3. ISOSORBIDE MONONITRATE [Concomitant]
     Active Substance: ISOSORBIDE MONONITRATE
     Route: 050
     Dates: start: 20240516
  4. OTOMIZE [Concomitant]
     Route: 050
     Dates: start: 20240516, end: 20240521
  5. AMLODIPINE [Concomitant]
     Active Substance: AMLODIPINE BESYLATE
     Route: 050
     Dates: start: 20240208
  6. ASPIRIN [Concomitant]
     Active Substance: ASPIRIN
     Dosage: ONCE DAILY
     Route: 050
     Dates: start: 20240208
  7. ATORVASTATIN [Concomitant]
     Active Substance: ATORVASTATIN
     Indication: Ill-defined disorder
     Route: 050
     Dates: start: 20240208
  8. BENDROFLUMETHIAZIDE [Concomitant]
     Active Substance: BENDROFLUMETHIAZIDE
     Indication: Hypertension
     Dosage: ONCE DAILY AT MORNING
     Route: 050
     Dates: start: 20240208
  9. BISOPROLOL [Concomitant]
     Active Substance: BISOPROLOL\BISOPROLOL FUMARATE
     Route: 050
     Dates: start: 20240208
  10. NITROGLYCERIN [Concomitant]
     Active Substance: NITROGLYCERIN
     Route: 050
     Dates: start: 20240208
  11. LANSOPRAZOLE [Concomitant]
     Active Substance: LANSOPRAZOLE
     Route: 050
     Dates: start: 20240208
  12. LISINOPRIL [Concomitant]
     Active Substance: LISINOPRIL
     Dosage: ONCE DAILY
     Route: 050
     Dates: start: 20240208
  13. ACETAMINOPHEN [Concomitant]
     Active Substance: ACETAMINOPHEN
     Route: 050
     Dates: start: 20240208

REACTIONS (1)
  - Malaise [Recovered/Resolved]

NARRATIVE: CASE EVENT DATE: 20240625
